FAERS Safety Report 18489491 (Version 1)
Quarter: 2020Q4

REPORT INFORMATION
  Report Type: Spontaneous
  Country: GB (occurrence: GB)
  Receive Date: 20201111
  Receipt Date: 20201111
  Transmission Date: 20210114
  Serious: Yes (Other)
  Sender: FDA-Public Use
  Company Number: GB-ACCORD-207649

PATIENT
  Age: 78 Year
  Sex: Male
  Weight: 76.2 kg

DRUGS (11)
  1. FUROSEMIDE. [Concomitant]
     Active Substance: FUROSEMIDE
  2. ATORVASTATIN/ATORVASTATIN CALCIUM [Suspect]
     Active Substance: ATORVASTATIN CALCIUM
     Indication: MYOCARDIAL INFARCTION
     Route: 048
     Dates: start: 20200520
  3. FINASTERIDE. [Concomitant]
     Active Substance: FINASTERIDE
  4. MONOMIL XL [Concomitant]
     Active Substance: ISOSORBIDE MONONITRATE
  5. ACETYLSALICYLIC ACID [Concomitant]
     Active Substance: ASPIRIN
  6. CLOPIDOGREL [Concomitant]
     Active Substance: CLOPIDOGREL BISULFATE
  7. SIMVASTATIN. [Concomitant]
     Active Substance: SIMVASTATIN
  8. BISOPROLOL [Concomitant]
     Active Substance: BISOPROLOL
  9. GANFORT [Concomitant]
     Active Substance: BIMATOPROST\TIMOLOL
  10. ALLOPURINOL. [Concomitant]
     Active Substance: ALLOPURINOL
  11. LOSARTAN. [Concomitant]
     Active Substance: LOSARTAN

REACTIONS (3)
  - Skin exfoliation [Not Recovered/Not Resolved]
  - Erythema [Not Recovered/Not Resolved]
  - Pruritus [Not Recovered/Not Resolved]

NARRATIVE: CASE EVENT DATE: 20200610
